FAERS Safety Report 10440553 (Version 1)
Quarter: 2014Q3

REPORT INFORMATION
  Report Type: Spontaneous
  Country: US (occurrence: None)
  Receive Date: 20140908
  Receipt Date: 20140908
  Transmission Date: 20150326
  Serious: Yes (Death, Hospitalization)
  Sender: FDA-Public Use
  Company Number: None

PATIENT
  Age: 33 Year
  Sex: Female
  Weight: 101.3 kg

DRUGS (6)
  1. CYCLOPHOSPHAMIDE. [Suspect]
     Active Substance: CYCLOPHOSPHAMIDE
  2. IFOSFAMIDE. [Suspect]
     Active Substance: IFOSFAMIDE
  3. DOXORUBICIN HYDROCHLORIDE. [Suspect]
     Active Substance: DOXORUBICIN HYDROCHLORIDE
  4. TOPOTECAN [Suspect]
     Active Substance: TOPOTECAN\TOPOTECAN HYDROCHLORIDE
  5. VINCRISTINE SULFATE. [Suspect]
     Active Substance: VINCRISTINE SULFATE
  6. ETOPOSIDE (VP-16) [Suspect]
     Active Substance: ETOPOSIDE

REACTIONS (12)
  - Clostridium test positive [None]
  - Blood lactic acid increased [None]
  - Febrile neutropenia [None]
  - Left ventricular dysfunction [None]
  - Diarrhoea [None]
  - Nausea [None]
  - Tachycardia [None]
  - Agitation [None]
  - Pain [None]
  - Tachypnoea [None]
  - Shock [None]
  - Drug effect decreased [None]

NARRATIVE: CASE EVENT DATE: 20140825
